FAERS Safety Report 17094517 (Version 2)
Quarter: 2019Q4

REPORT INFORMATION
  Report Type: Report from Study
  Country: None (occurrence: CA)
  Receive Date: 20191129
  Receipt Date: 20191211
  Transmission Date: 20200122
  Serious: Yes (Other)
  Sender: FDA-Public Use
  Company Number: CA-ABBVIE-19K-028-3172659-00

PATIENT
  Sex: Female

DRUGS (1)
  1. HUMIRA [Suspect]
     Active Substance: ADALIMUMAB
     Indication: RHEUMATOID ARTHRITIS
     Route: 058
     Dates: start: 20190826, end: 2019

REACTIONS (10)
  - Pulmonary oedema [Recovered/Resolved]
  - Glomerulonephritis rapidly progressive [Unknown]
  - Renal impairment [Not Recovered/Not Resolved]
  - Peripheral coldness [Unknown]
  - Middle ear effusion [Unknown]
  - Pain [Not Recovered/Not Resolved]
  - Malaise [Unknown]
  - Asthenia [Unknown]
  - Renal vasculitis [Unknown]
  - Dyspnoea [Unknown]

NARRATIVE: CASE EVENT DATE: 2019
